FAERS Safety Report 18206698 (Version 1)
Quarter: 2020Q3

REPORT INFORMATION
  Report Type: Spontaneous
  Country: US (occurrence: US)
  Receive Date: 20200828
  Receipt Date: 20200828
  Transmission Date: 20201103
  Serious: No
  Sender: FDA-Public Use
  Company Number: US-009507513-2008USA012740

PATIENT
  Age: 38 Year
  Sex: Female

DRUGS (12)
  1. ESTRADIOL. [Concomitant]
     Active Substance: ESTRADIOL
     Dosage: UNK
  2. PANTOPRAZOLE [Concomitant]
     Active Substance: PANTOPRAZOLE
     Dosage: UNK
  3. PROCTOZONE HC [Concomitant]
     Active Substance: HYDROCORTISONE
     Dosage: UNK
  4. DIPROLENE [Concomitant]
     Active Substance: BETAMETHASONE DIPROPIONATE
     Dosage: UNK
  5. CLOMIPHENE CITRATE. [Concomitant]
     Active Substance: CLOMIPHENE CITRATE
     Dosage: UNK
  6. AZITHROMYCIN ANHYDROUS. [Concomitant]
     Active Substance: AZITHROMYCIN ANHYDROUS
     Dosage: UNK
  7. GANIRELIX ACETATE INJECTION [Concomitant]
     Active Substance: GANIRELIX ACETATE
     Dosage: UNK
  8. PREGNYL [Concomitant]
     Active Substance: CHORIOGONADOTROPIN ALFA
     Dosage: 100000 (UNITS NOT REPORTED)
  9. FOLLISTIM AQ [Suspect]
     Active Substance: FOLLITROPIN
     Dosage: STRENGTH: 900 INTERNATIONAL UNIT PER 1.08 MILLILITER, DOSE: 300 UNITS, QD
     Route: 058
     Dates: start: 20200807
  10. FOLLISTIM AQ [Suspect]
     Active Substance: FOLLITROPIN
  11. MENOPUR [Concomitant]
     Active Substance: FOLLITROPIN\LUTEINIZING HORMONE
     Dosage: UNK
  12. NITROFURANTOIN. [Concomitant]
     Active Substance: NITROFURANTOIN
     Dosage: UNK

REACTIONS (3)
  - Fatigue [Unknown]
  - Pain [Unknown]
  - Depressed mood [Unknown]

NARRATIVE: CASE EVENT DATE: 202008
